FAERS Safety Report 7020500-8 (Version None)
Quarter: 2010Q3

REPORT INFORMATION
  Report Type: 
  Country: None (occurrence: None)
  Receive Date: 20100929
  Receipt Date: 20100921
  Transmission Date: 20110219
  Serious: Yes (Other)
  Sender: FDA-Public Use
  Company Number: CN-ROCHE-728243

PATIENT
  Age: 46 Year
  Sex: Female

DRUGS (1)
  1. PEGINTERFERON ALFA-2A [Suspect]
     Indication: HEPATITIS C
     Route: 058
     Dates: start: 20100316

REACTIONS (5)
  - DEPRESSED MOOD [None]
  - HEPATIC CIRRHOSIS [None]
  - HYPERTHYROIDISM [None]
  - TRANSAMINASES INCREASED [None]
  - VIRAL LOAD INCREASED [None]
